FAERS Safety Report 19270269 (Version 9)
Quarter: 2022Q2

REPORT INFORMATION
  Report Type: Report from Study
  Country: US (occurrence: US)
  Receive Date: 20210518
  Receipt Date: 20220523
  Transmission Date: 20220721
  Serious: Yes (Hospitalization, Other)
  Sender: FDA-Public Use
  Company Number: US-BOEHRINGERINGELHEIM-2021-BI-092915

PATIENT
  Sex: Male

DRUGS (2)
  1. OFEV [Suspect]
     Active Substance: NINTEDANIB
     Indication: Pulmonary fibrosis
     Route: 048
     Dates: start: 20210108, end: 20220201
  2. OFEV [Suspect]
     Active Substance: NINTEDANIB
     Route: 048
     Dates: start: 20220207

REACTIONS (15)
  - Pneumonia [Unknown]
  - COVID-19 [Unknown]
  - Myocardial infarction [Unknown]
  - Pulmonary congestion [Unknown]
  - Diarrhoea [Not Recovered/Not Resolved]
  - Dizziness [Unknown]
  - Productive cough [Not Recovered/Not Resolved]
  - Weight decreased [Unknown]
  - Sputum increased [Not Recovered/Not Resolved]
  - Dyspnoea [Unknown]
  - Muscle spasms [Unknown]
  - Pain in extremity [Unknown]
  - Peripheral coldness [Unknown]
  - Facial bones fracture [Unknown]
  - Movement disorder [Unknown]
